FAERS Safety Report 9462761 (Version 1)
Quarter: 2013Q3

REPORT INFORMATION
  Report Type: Spontaneous
  Country: JP (occurrence: JP)
  Receive Date: 20130816
  Receipt Date: 20130816
  Transmission Date: 20140515
  Serious: Yes (Death, Hospitalization)
  Sender: FDA-Public Use
  Company Number: JP-BAXTER-2013BAX031502

PATIENT
  Age: 91 Year
  Sex: Female

DRUGS (1)
  1. DIANEAL-N PD-4 2.5 PD SOLUTION [Suspect]
     Indication: NEPHROSCLEROSIS
     Route: 033
     Dates: start: 20091029, end: 20130804

REACTIONS (2)
  - Cardiac failure [Fatal]
  - Gastrointestinal haemorrhage [Unknown]
